FAERS Safety Report 5999888-2 (Version None)
Quarter: 2008Q4

REPORT INFORMATION
  Report Type: 
  Country: None (occurrence: None)
  Receive Date: 20081215
  Receipt Date: 20081204
  Transmission Date: 20090506
  Serious: Yes (Hospitalization)
  Sender: FDA-Public Use
  Company Number: FR-AVENTIS-200814271FR

PATIENT
  Age: 68 Year
  Sex: Male

DRUGS (11)
  1. LASIX [Suspect]
     Indication: DRUG USE FOR UNKNOWN INDICATION
     Route: 048
     Dates: start: 20080620, end: 20080624
  2. ATROVENT [Suspect]
     Indication: DRUG USE FOR UNKNOWN INDICATION
     Route: 045
     Dates: start: 20080621, end: 20080625
  3. MUCOMYST [Suspect]
     Indication: DRUG USE FOR UNKNOWN INDICATION
     Dates: start: 20080621, end: 20080625
  4. ZOCOR [Concomitant]
     Route: 048
  5. GLUCOPHAGE [Concomitant]
     Indication: TYPE 2 DIABETES MELLITUS
     Route: 048
  6. AMARYL [Concomitant]
     Indication: TYPE 2 DIABETES MELLITUS
     Route: 048
  7. CIBACENE [Concomitant]
     Route: 048
  8. APROVEL [Concomitant]
     Route: 048
  9. ISOPTIN [Concomitant]
     Route: 048
  10. KARDEGIC                           /00002703/ [Concomitant]
     Route: 048
  11. PREVISCAN                          /00789001/ [Concomitant]
     Indication: PULMONARY EMBOLISM
     Route: 048

REACTIONS (1)
  - HEPATOCELLULAR INJURY [None]
